FAERS Safety Report 5828111-4 (Version None)
Quarter: 2008Q3

REPORT INFORMATION
  Report Type: 
  Country: None (occurrence: None)
  Receive Date: 20080730
  Receipt Date: 20080730
  Transmission Date: 20090109
  Serious: Yes (Other)
  Sender: FDA-Public Use
  Company Number: None

PATIENT
  Age: 73 Year
  Sex: Male
  Weight: 94.66 kg

DRUGS (1)
  1. PB SYRUP -SODIUM PHENYLBUTYRATE 100 MG/ML SRB PHARMACY, STAFFORD, TX [Suspect]
     Dosage: 30 ML 6 TIMES DAILY PO
     Route: 048
     Dates: start: 20080717, end: 20080729

REACTIONS (2)
  - CIRCUMSTANCE OR INFORMATION CAPABLE OF LEADING TO MEDICATION ERROR [None]
  - MEDICATION ERROR [None]
